FAERS Safety Report 8554183-2 (Version None)
Quarter: 2012Q3

REPORT INFORMATION
  Report Type: 
  Country: None (occurrence: None)
  Receive Date: 20120731
  Receipt Date: 20120725
  Transmission Date: 20120928
  Serious: Yes (Death, Hospitalization, Other)
  Sender: FDA-Public Use
  Company Number: FR-ELI_LILLY_AND_COMPANY-FR201207007577

PATIENT
  Sex: Male

DRUGS (1)
  1. GEMZAR [Suspect]

REACTIONS (4)
  - CONGESTIVE CARDIOMYOPATHY [None]
  - CARDIAC FAILURE [None]
  - RENAL FAILURE ACUTE [None]
  - LUNG DISORDER [None]
